FAERS Safety Report 19354029 (Version 2)
Quarter: 2021Q2

REPORT INFORMATION
  Report Type: Report from Study
  Country: KR (occurrence: KR)
  Receive Date: 20210602
  Receipt Date: 20210604
  Transmission Date: 20210717
  Serious: Yes (Hospitalization, Other)
  Sender: FDA-Public Use
  Company Number: KR-AMGEN-KORCT2021081761

PATIENT
  Age: 55 Year
  Sex: Male

DRUGS (43)
  1. FILGRASTIM [Suspect]
     Active Substance: FILGRASTIM
     Indication: PRODUCT USED FOR UNKNOWN INDICATION
     Dosage: UNK, QD (300)
     Route: 065
     Dates: start: 20160808, end: 20160811
  2. DARBEPOETIN ALFA [Concomitant]
     Active Substance: DARBEPOETIN ALFA
     Dosage: UNK UNK, QD (500)
     Dates: start: 20160802, end: 20160802
  3. GRANISETRON [Concomitant]
     Active Substance: GRANISETRON
     Dosage: UNK UNK, QD (1)
     Dates: start: 20160822, end: 20160828
  4. CARVEDILOL. [Concomitant]
     Active Substance: CARVEDILOL
     Indication: PRODUCT USED FOR UNKNOWN INDICATION
     Dosage: 25 MILLIGRAM, QD
     Dates: start: 20160823, end: 20160921
  5. FENTANYL. [Concomitant]
     Active Substance: FENTANYL
     Dosage: UNK, QD (25)
     Dates: start: 20160328
  6. RANITIDINE. [Concomitant]
     Active Substance: RANITIDINE
     Indication: PRODUCT USED FOR UNKNOWN INDICATION
     Dosage: 50 MILLIGRAM, QD
     Dates: start: 20160802, end: 20160802
  7. DEXAMETHASONE. [Concomitant]
     Active Substance: DEXAMETHASONE
     Indication: PRODUCT USED FOR UNKNOWN INDICATION
     Dosage: 4 MILLIGRAM, QD
     Dates: start: 20160803, end: 20160805
  8. DEXAMETHASONE. [Concomitant]
     Active Substance: DEXAMETHASONE
     Dosage: 5 MILLIGRAM, QD
     Dates: start: 20160922, end: 20160923
  9. GRANISETRON [Concomitant]
     Active Substance: GRANISETRON
     Dosage: UNK UNK, QD (1)
     Dates: start: 20160801, end: 20160807
  10. GRANISETRON [Concomitant]
     Active Substance: GRANISETRON
     Dosage: UNK UNK, QD (1)
     Dates: start: 20160919, end: 20160925
  11. MORPHINE [Concomitant]
     Active Substance: MORPHINE
     Indication: PRODUCT USED FOR UNKNOWN INDICATION
     Dosage: 3 MILLIGRAM, QD
     Dates: start: 20160921, end: 20160923
  12. PACLITAXEL. [Concomitant]
     Active Substance: PACLITAXEL
     Indication: PRODUCT USED FOR UNKNOWN INDICATION
     Dosage: 318.5 MILLIGRAM, QD
     Dates: start: 20160823, end: 20160823
  13. PACLITAXEL. [Concomitant]
     Active Substance: PACLITAXEL
     Dosage: 320 MILLIGRAM, QD
     Dates: start: 20160802, end: 20160802
  14. RANITIDINE. [Concomitant]
     Active Substance: RANITIDINE
     Dosage: 50 MILLIGRAM, QD
     Dates: start: 20160823, end: 20160823
  15. CODEINE;DICLOFENAC [Concomitant]
     Indication: PRODUCT USED FOR UNKNOWN INDICATION
     Dosage: UNK, QD (2)
     Dates: start: 20160808, end: 20160821
  16. FAMOTIDINE. [Concomitant]
     Active Substance: FAMOTIDINE
     Indication: PRODUCT USED FOR UNKNOWN INDICATION
     Dosage: 20 MILLIGRAM, QD
     Dates: start: 20160921, end: 20160928
  17. RANITIDINE. [Concomitant]
     Active Substance: RANITIDINE
     Dosage: 50 MILLIGRAM, QD
     Dates: start: 20160922, end: 20160923
  18. APREPITANT. [Concomitant]
     Active Substance: APREPITANT
     Dosage: 150 MILLIGRAM, QD
     Dates: start: 20160920, end: 20160920
  19. CHLORPHENAMINE [Concomitant]
     Active Substance: CHLORPHENIRAMINE MALEATE
     Indication: PRODUCT USED FOR UNKNOWN INDICATION
     Dosage: 4 MILLIGRAM, QD
     Dates: start: 20160802, end: 20160802
  20. DEXAMETHASONE. [Concomitant]
     Active Substance: DEXAMETHASONE
     Dosage: 20 MILLIGRAM, QD
     Dates: start: 20160823, end: 20160823
  21. FUROSEMIDE. [Concomitant]
     Active Substance: FUROSEMIDE
     Indication: PRODUCT USED FOR UNKNOWN INDICATION
     Dosage: 20 MILLIGRAM, QD
     Dates: start: 20160802, end: 20160802
  22. PACLITAXEL. [Concomitant]
     Active Substance: PACLITAXEL
     Dosage: 322 MILLIGRAM, QD
     Dates: start: 20160802, end: 20160920
  23. APREPITANT. [Concomitant]
     Active Substance: APREPITANT
     Dosage: 150 MILLIGRAM, QD
     Dates: start: 20160823, end: 20160823
  24. CHLORPHENAMINE [Concomitant]
     Active Substance: CHLORPHENIRAMINE MALEATE
     Dosage: 4 MILLIGRAM, QD
     Dates: start: 20160920, end: 20160920
  25. CISPLATIN. [Concomitant]
     Active Substance: CISPLATIN
     Dosage: 109.2 MILLIGRAM, QD
     Dates: start: 20160920, end: 20160920
  26. DEXAMETHASONE. [Concomitant]
     Active Substance: DEXAMETHASONE
     Dosage: 12 MILLIGRAM, QD
     Dates: start: 20160920, end: 20160920
  27. FUROSEMIDE. [Concomitant]
     Active Substance: FUROSEMIDE
     Dosage: 20 MILLIGRAM, QD
     Dates: start: 20160823, end: 20160823
  28. PREGABALIN. [Concomitant]
     Active Substance: PREGABALIN
     Indication: PRODUCT USED FOR UNKNOWN INDICATION
     Dosage: UNK, QD (1)
     Dates: start: 20160808, end: 20160828
  29. RANITIDINE. [Concomitant]
     Active Substance: RANITIDINE
     Dosage: 50 MILLIGRAM, QD
     Dates: start: 20160920, end: 20160920
  30. RANITIDINE. [Concomitant]
     Active Substance: RANITIDINE
     Dosage: 150 MILLIGRAM, QD
     Dates: start: 20160824, end: 20160826
  31. URSODEOXYCHOLIC ACID [Concomitant]
     Active Substance: URSODIOL
     Indication: PRODUCT USED FOR UNKNOWN INDICATION
     Dosage: 200 MILLIGRAM, QD
     Dates: start: 20160316, end: 20160731
  32. APREPITANT. [Concomitant]
     Active Substance: APREPITANT
     Indication: PRODUCT USED FOR UNKNOWN INDICATION
     Dosage: 150 MILLIGRAM, QD
     Dates: start: 20160802, end: 20160802
  33. CHLORPHENAMINE [Concomitant]
     Active Substance: CHLORPHENIRAMINE MALEATE
     Dosage: 4 MILLIGRAM, QD
     Dates: start: 20160823, end: 20160823
  34. CISPLATIN. [Concomitant]
     Active Substance: CISPLATIN
     Indication: PRODUCT USED FOR UNKNOWN INDICATION
     Dosage: 109.2 MILLIGRAM, QD
     Dates: start: 20160823, end: 20160823
  35. DEXAMETHASONE. [Concomitant]
     Active Substance: DEXAMETHASONE
     Dosage: 20 MILLIGRAM, QD
     Dates: start: 20160802, end: 20160802
  36. FENTANYL. [Concomitant]
     Active Substance: FENTANYL
     Indication: PRODUCT USED FOR UNKNOWN INDICATION
     Dosage: UNK, QD (20)
     Dates: start: 20160921, end: 20160928
  37. TRANEXAMIC ACID. [Concomitant]
     Active Substance: TRANEXAMIC ACID
     Indication: PRODUCT USED FOR UNKNOWN INDICATION
     Dosage: 500 MILLIGRAM, QD
     Dates: start: 20160922, end: 20161001
  38. CISPLATIN. [Concomitant]
     Active Substance: CISPLATIN
     Dosage: 109.8 MILLIGRAM, QD
     Dates: start: 20160802, end: 20160802
  39. DARBEPOETIN ALFA [Concomitant]
     Active Substance: DARBEPOETIN ALFA
     Indication: PRODUCT USED FOR UNKNOWN INDICATION
     Dosage: UNK UNK, QD (480)
     Dates: start: 20160823, end: 20160823
  40. DEXAMETHASONE. [Concomitant]
     Active Substance: DEXAMETHASONE
     Dosage: 4 MILLIGRAM, QD
     Dates: start: 20160824, end: 20200826
  41. FERROUS SULFATE. [Concomitant]
     Active Substance: FERROUS SULFATE
     Indication: PRODUCT USED FOR UNKNOWN INDICATION
     Dosage: 1 DOSAGE FORM, QD
     Dates: start: 20160810, end: 20161006
  42. PREGABALIN. [Concomitant]
     Active Substance: PREGABALIN
     Dosage: UNK, QD (1)
     Dates: start: 20160829, end: 20161103
  43. RANITIDINE. [Concomitant]
     Active Substance: RANITIDINE
     Dosage: 150 MILLIGRAM, QD
     Dates: start: 20160803, end: 20160805

REACTIONS (1)
  - Gastric haemorrhage [Recovered/Resolved]

NARRATIVE: CASE EVENT DATE: 20160922
